FAERS Safety Report 21156781 (Version 1)
Quarter: 2022Q3

REPORT INFORMATION
  Report Type: Spontaneous
  Country: JP (occurrence: JP)
  Receive Date: 20220801
  Receipt Date: 20220801
  Transmission Date: 20221027
  Serious: Yes (Other)
  Sender: FDA-Public Use
  Company Number: JP-PFIZER INC-PV202200032171

PATIENT
  Sex: Female

DRUGS (2)
  1. LATANOPROST\TIMOLOL MALEATE [Suspect]
     Active Substance: LATANOPROST\TIMOLOL MALEATE
     Dosage: USED IN RIGHT EYE; IN THE EVENING
     Route: 031
  2. XALATAN [Suspect]
     Active Substance: LATANOPROST
     Dosage: USED IN LEFT EYE, IN THE EVENING
     Route: 031

REACTIONS (4)
  - Sjogren^s syndrome [Unknown]
  - Cough [Unknown]
  - Dry mouth [Unknown]
  - Dry throat [Unknown]
